FAERS Safety Report 8775049 (Version 1)
Quarter: 2012Q4

REPORT INFORMATION
  Report Type: Report from Study
  Country: CA (occurrence: CA)
  Receive Date: 20120910
  Receipt Date: 20120910
  Transmission Date: 20130627
  Serious: Yes (Other)
  Sender: FDA-Public Use
  Company Number: CA-JNJFOC-20120814959

PATIENT
  Age: 60 Year
  Sex: Male
  Weight: 75.7 kg

DRUGS (6)
  1. REMICADE [Suspect]
     Indication: COLITIS ULCERATIVE
     Dosage: 10 infusions till date
     Route: 042
  2. SALOFALK [Concomitant]
     Route: 065
  3. IMURAN [Concomitant]
     Route: 065
  4. FOLIC ACID [Concomitant]
     Route: 065
  5. TRAZODONE [Concomitant]
     Route: 065
  6. REACTINE [Concomitant]
     Dosage: dose reoprted as 20 (units unspecified)
     Route: 065

REACTIONS (1)
  - Mastocytosis [Unknown]
